FAERS Safety Report 25754249 (Version 2)
Quarter: 2025Q3

REPORT INFORMATION
  Report Type: Spontaneous
  Country: US (occurrence: US)
  Receive Date: 20250903
  Receipt Date: 20250917
  Transmission Date: 20251021
  Serious: No
  Sender: AMGEN
  Company Number: US-AMGEN-USASP2025170320

PATIENT
  Age: 44 Year
  Sex: Male

DRUGS (13)
  1. REPATHA [Suspect]
     Active Substance: EVOLOCUMAB
     Indication: Blood cholesterol abnormal
     Dosage: 140 MILLIGRAM, Q2WK
     Route: 058
     Dates: start: 20250801
  2. LOSARTAN [Concomitant]
     Active Substance: LOSARTAN
  3. FUROSEMIDE [Concomitant]
     Active Substance: FUROSEMIDE
  4. EZETIMIBE [Concomitant]
     Active Substance: EZETIMIBE
  5. LANTUS [Concomitant]
     Active Substance: INSULIN GLARGINE
  6. INSULIN NOS [Concomitant]
     Active Substance: INSULIN NOS
  7. OZEMPIC [Concomitant]
     Active Substance: SEMAGLUTIDE
     Dosage: UNK UNK, (4 MILLIGRAM PER 3 MILLILITER), QWK
  8. MAGNESIUM [Concomitant]
     Active Substance: MAGNESIUM
  9. VITAMIN D3 [Concomitant]
     Active Substance: CHOLECALCIFEROL
  10. JWH-018 [Concomitant]
     Active Substance: JWH-018
  11. FIBER THERAPY (CALCIUM POLYCARBOPHIL) [Concomitant]
     Active Substance: CALCIUM POLYCARBOPHIL
  12. Sea moss [Concomitant]
  13. VITAMINS [Concomitant]
     Active Substance: VITAMINS

REACTIONS (6)
  - Blister [Recovering/Resolving]
  - Blister rupture [Recovering/Resolving]
  - Chest discomfort [Recovering/Resolving]
  - Oropharyngeal pain [Recovering/Resolving]
  - Blood urine present [Unknown]
  - Urine odour abnormal [Unknown]

NARRATIVE: CASE EVENT DATE: 20250808
